FAERS Safety Report 5912528-3 (Version None)
Quarter: 2008Q4

REPORT INFORMATION
  Report Type: 
  Country: None (occurrence: None)
  Receive Date: 20081008
  Receipt Date: 20080926
  Transmission Date: 20090506
  Serious: Yes (Other)
  Sender: FDA-Public Use
  Company Number: FR-CELGENEUS-056-20785-08070604

PATIENT
  Sex: Female
  Weight: 53 kg

DRUGS (3)
  1. THALIDOMIDE [Suspect]
     Route: 048
     Dates: start: 20080611, end: 20080711
  2. CORTANCYL [Concomitant]
     Route: 065
  3. IMPLANON [Concomitant]
     Indication: CONTRACEPTION
     Route: 058
     Dates: start: 20080516

REACTIONS (1)
  - PREGNANCY TEST FALSE POSITIVE [None]
